FAERS Safety Report 11492794 (Version 2)
Quarter: 2016Q2

REPORT INFORMATION
  Report Type: Report from Study
  Country: JP (occurrence: JP)
  Receive Date: 20150911
  Receipt Date: 20160414
  Transmission Date: 20160815
  Serious: Yes (Hospitalization)
  Sender: FDA-Public Use
  Company Number: JP-UCBSA-2015028230

PATIENT
  Age: 71 Year
  Sex: Male
  Weight: 50 kg

DRUGS (6)
  1. ROZEREM [Concomitant]
     Active Substance: RAMELTEON
     Indication: PRODUCT USED FOR UNKNOWN INDICATION
     Dosage: UNK
     Dates: start: 20131217
  2. ROTIGOTINE [Suspect]
     Active Substance: ROTIGOTINE
     Dosage: 4 MG DAILY
     Route: 062
     Dates: start: 20140303, end: 20140316
  3. MADOPAR [Concomitant]
     Active Substance: BENSERAZIDE HYDROCHLORIDE\LEVODOPA
     Indication: PARKINSON^S DISEASE
     Dosage: UNK
     Dates: start: 20130215, end: 20150122
  4. ROTIGOTINE [Suspect]
     Active Substance: ROTIGOTINE
     Indication: PARKINSON^S DISEASE
     Dosage: 2 MG, DAILY
     Route: 062
     Dates: start: 20140218, end: 20140302
  5. ROTIGOTINE [Suspect]
     Active Substance: ROTIGOTINE
     Dosage: 6 MG DAILY
     Route: 062
     Dates: start: 20140317
  6. STALEVO [Concomitant]
     Active Substance: CARBIDOPA\ENTACAPONE\LEVODOPA
     Indication: PARKINSON^S DISEASE
     Dosage: UNK
     Dates: start: 20150123

REACTIONS (2)
  - Pneumonia aspiration [Recovered/Resolved]
  - Hypertension [Recovered/Resolved]

NARRATIVE: CASE EVENT DATE: 20140331
